FAERS Safety Report 4751249-X (Version None)
Quarter: 2005Q3

REPORT INFORMATION
  Report Type: 
  Country: None (occurrence: None)
  Receive Date: 20050823
  Receipt Date: 20050823
  Transmission Date: 20060218
  Serious: Yes (Other)
  Sender: FDA-Public Use
  Company Number: None

PATIENT
  Age: 35 Year
  Sex: Female
  Weight: 93.441 kg

DRUGS (2)
  1. OXYCODONE   80MG [Suspect]
     Indication: ARTHRALGIA
     Dosage: 80MG    BID   1  PO
     Route: 048
     Dates: start: 20050713, end: 20050810
  2. OXYCODONE   80MG [Suspect]
     Indication: BACK PAIN
     Dosage: 80MG    BID   1  PO
     Route: 048
     Dates: start: 20050713, end: 20050810

REACTIONS (4)
  - DRUG INEFFECTIVE [None]
  - MEDICATION ERROR [None]
  - NAUSEA [None]
  - VOMITING [None]
